FAERS Safety Report 14176100 (Version 1)
Quarter: 2017Q4

REPORT INFORMATION
  Report Type: Spontaneous
  Country: US (occurrence: US)
  Receive Date: 20171109
  Receipt Date: 20171109
  Transmission Date: 20180321
  Serious: No
  Sender: FDA-Public Use
  Company Number: US-009507513-1711USA003187

PATIENT
  Age: 25 Year
  Sex: Female
  Weight: 62.13 kg

DRUGS (1)
  1. NEXPLANON [Suspect]
     Active Substance: ETONOGESTREL
     Indication: CONTRACEPTION
     Dosage: 1 IMPLANT, EVERY 3 YEARS
     Route: 059
     Dates: start: 20160123

REACTIONS (8)
  - Amenorrhoea [Recovered/Resolved]
  - Asthenia [Unknown]
  - Depression [Unknown]
  - Fatigue [Unknown]
  - Menstruation irregular [Not Recovered/Not Resolved]
  - Menometrorrhagia [Not Recovered/Not Resolved]
  - Abdominal pain upper [Unknown]
  - Implant site hypoaesthesia [Unknown]

NARRATIVE: CASE EVENT DATE: 20160123
